FAERS Safety Report 7851677-X (Version None)
Quarter: 2011Q4

REPORT INFORMATION
  Report Type: 
  Country: None (occurrence: None)
  Receive Date: 20111026
  Receipt Date: 20111018
  Transmission Date: 20120403
  Serious: Yes (Other)
  Sender: FDA-Public Use
  Company Number: PHHY2011MX93412

PATIENT
  Sex: Female

DRUGS (3)
  1. EXFORGE [Suspect]
     Dosage: 1 DF (160/10MG) , QD
  2. CRESTOR [Concomitant]
     Dosage: UNK
     Dates: start: 20080401
  3. EXFORGE [Suspect]
     Indication: HYPERTENSION
     Dosage: 1 DF (160/5MG) , QD
     Dates: start: 20110401, end: 20111017

REACTIONS (4)
  - OCULAR HYPERAEMIA [None]
  - INTRAOCULAR PRESSURE INCREASED [None]
  - BLOOD PRESSURE INCREASED [None]
  - BLOOD PRESSURE INADEQUATELY CONTROLLED [None]
